FAERS Safety Report 4305398-0 (Version None)
Quarter: 2004Q1

REPORT INFORMATION
  Report Type: 
  Country: None (occurrence: None)
  Receive Date: 20040226
  Receipt Date: 20031009
  Transmission Date: 20041129
  Serious: Yes (Other)
  Sender: FDA-Public Use
  Company Number: US-BRISTOL-MYERS SQUIBB COMPANY-12407516

PATIENT
  Age: 53 Year
  Sex: Female
  Weight: 79 kg

DRUGS (5)
  1. TAXOL [Suspect]
     Indication: OVARIAN CANCER
     Route: 042
     Dates: start: 20030910, end: 20030910
  2. CARBOPLATIN [Suspect]
     Indication: OVARIAN CANCER
     Route: 042
     Dates: start: 20030910, end: 20030910
  3. DECADRON [Concomitant]
     Indication: PREMEDICATION
     Dosage: 20 MG PM 09 SEP 2003 IN THE PM; 20 MG 10 SEP 2003 IN THE AM FOLLOWED BY IV (DOSE UNKNOWN)
     Dates: start: 20030909, end: 20030910
  4. BENADRYL [Concomitant]
     Indication: PREMEDICATION
     Route: 042
     Dates: start: 20030910, end: 20030910
  5. TAGAMET [Concomitant]
     Indication: PREMEDICATION
     Route: 042
     Dates: start: 20030910, end: 20030910

REACTIONS (1)
  - HYPERSENSITIVITY [None]
